FAERS Safety Report 6075046-0 (Version None)
Quarter: 2009Q1

REPORT INFORMATION
  Report Type: 
  Country: None (occurrence: None)
  Receive Date: 20090212
  Receipt Date: 20090203
  Transmission Date: 20090719
  Serious: Yes (Other)
  Sender: FDA-Public Use
  Company Number: US-BAYER-200912430NA

PATIENT
  Age: 30 Year
  Sex: Female
  Weight: 76 kg

DRUGS (3)
  1. MIRENA [Suspect]
     Indication: MENSTRUATION IRREGULAR
     Route: 015
     Dates: start: 20030101
  2. MIRENA [Suspect]
     Route: 015
     Dates: start: 20050101
  3. MIRENA [Suspect]
     Route: 015
     Dates: start: 20050101, end: 20080101

REACTIONS (4)
  - INFERTILITY FEMALE [None]
  - IUCD COMPLICATION [None]
  - IUD MIGRATION [None]
  - MEDICATION ERROR [None]
